FAERS Safety Report 5035257-X (Version None)
Quarter: 2006Q2

REPORT INFORMATION
  Report Type: 
  Country: None (occurrence: None)
  Receive Date: 20060522
  Receipt Date: 20060216
  Transmission Date: 20061013
  Serious: Yes (Other)
  Sender: FDA-Public Use
  Company Number: US-JNJFOC-20060204596

PATIENT
  Age: 18 Year
  Sex: Male

DRUGS (6)
  1. RISPERDAL CONSTA [Suspect]
     Indication: PARANOIA
     Dosage: SEE IMAGE
     Route: 030
     Dates: start: 20050601, end: 20050701
  2. RISPERDAL CONSTA [Suspect]
     Indication: SCHIZOPHRENIA
     Dosage: SEE IMAGE
     Route: 030
     Dates: start: 20050601, end: 20050701
  3. RISPERDAL CONSTA [Suspect]
     Indication: PARANOIA
     Dosage: SEE IMAGE
     Route: 030
     Dates: start: 20050701, end: 20050901
  4. RISPERDAL CONSTA [Suspect]
     Indication: SCHIZOPHRENIA
     Dosage: SEE IMAGE
     Route: 030
     Dates: start: 20050701, end: 20050901
  5. RISPERDAL CONSTA [Suspect]
     Indication: PARANOIA
     Dosage: SEE IMAGE
     Route: 030
     Dates: start: 20050901
  6. RISPERDAL CONSTA [Suspect]
     Indication: SCHIZOPHRENIA
     Dosage: SEE IMAGE
     Route: 030
     Dates: start: 20050901

REACTIONS (2)
  - INCREASED APPETITE [None]
  - WEIGHT INCREASED [None]
